FAERS Safety Report 5726954-9 (Version None)
Quarter: 2008Q2

REPORT INFORMATION
  Report Type: 
  Country: None (occurrence: None)
  Receive Date: 20080502
  Receipt Date: 20080421
  Transmission Date: 20081010
  Serious: Yes (Other)
  Sender: FDA-Public Use
  Company Number: JP-PFIZER INC-2008037394

PATIENT
  Age: 34 Year
  Sex: Female

DRUGS (2)
  1. HALCION [Suspect]
     Route: 048
  2. ROHYPNOL [Suspect]

REACTIONS (4)
  - BLOOD PRESSURE DECREASED [None]
  - LOSS OF CONSCIOUSNESS [None]
  - OVERDOSE [None]
  - RHABDOMYOLYSIS [None]
